FAERS Safety Report 13825119 (Version 1)
Quarter: 2017Q3

REPORT INFORMATION
  Report Type: Spontaneous
  Country: US (occurrence: US)
  Receive Date: 20170802
  Receipt Date: 20170802
  Transmission Date: 20171127
  Serious: Yes (Other)
  Sender: FDA-Public Use
  Company Number: US-IGSA-SR10004864

PATIENT
  Age: 3 Year
  Sex: Male

DRUGS (1)
  1. GAMUNEX-C [Suspect]
     Active Substance: HUMAN IMMUNOGLOBULIN G
     Indication: KAWASAKI^S DISEASE
     Dosage: 2 UNK, UNK
     Route: 042
     Dates: start: 20170510, end: 20170510

REACTIONS (2)
  - Tachycardia [Recovered/Resolved]
  - Haemolytic anaemia [Recovered/Resolved]

NARRATIVE: CASE EVENT DATE: 20170510
